FAERS Safety Report 9231813 (Version 5)
Quarter: 2013Q4

REPORT INFORMATION
  Report Type: Spontaneous
  Country: US (occurrence: US)
  Receive Date: 20130415
  Receipt Date: 20131121
  Transmission Date: 20140711
  Serious: No
  Sender: FDA-Public Use
  Company Number: US-PFIZER INC-2013115952

PATIENT
  Age: 72 Year
  Sex: Female

DRUGS (26)
  1. LYRICA [Suspect]
     Dosage: 100 MG, 3X/DAY
     Route: 048
  2. LIPITOR [Suspect]
     Dosage: UNK
  3. ADVAIR [Concomitant]
     Dosage: UNK (1AM, 1PM)
  4. FOSAMAX [Concomitant]
     Dosage: 70 MG, WEEKLY
  5. CETAPHIL [Concomitant]
     Dosage: UNK, DAILY
  6. FLUTICASONE [Concomitant]
     Dosage: UNK
  7. FUROSEMIDE [Concomitant]
     Dosage: 80 MG, UNK (1 AM, 1 PM)
  8. HUMALOG [Concomitant]
     Dosage: UNK, 3X/DAY (4CC^S 3XDAILY)
  9. HYDROCODONE [Concomitant]
     Dosage: UNK
  10. LEVEMIR [Concomitant]
     Dosage: UNK (15 CC AT DINNER)
  11. REGLAN [Concomitant]
     Dosage: 5 MG, 4X/DAY
  12. MUCINEX DM [Concomitant]
     Dosage: UNK (1AM, 1PM)
  13. NEXIUM [Concomitant]
     Dosage: 40 MG, 2X/DAY (30 MINUTES BEFORE BREAKFAST AND DINNER) (1 IN AM, 1 IN PM)
     Route: 048
  14. NEXIUM [Concomitant]
     Dosage: 40 MG, 1X/DAY (1 AM)
  15. POTASSIUM CHLORIDE [Concomitant]
     Dosage: 10 MEQ, 2X/DAY, (4 IN AM, 4 IN PM)
  16. PRIMIDONE [Concomitant]
     Dosage: 50 MG, 1X/DAY (1 DAILY)
  17. SPIRONOLACTONE [Concomitant]
     Dosage: 25 MG, UNK (1 IN AM, 1 IN PM)
  18. NYSTATIN [Concomitant]
     Dosage: UNK
  19. VOLTAREN [Concomitant]
     Dosage: UNK
  20. PRO-AIR [Concomitant]
     Dosage: UNK, (90 MCQ AS NEEDED)
  21. BACTROBAN [Concomitant]
     Dosage: UNK, 2X/DAY (TWICE DAILY)
  22. TRIAMCINOLONE [Concomitant]
     Dosage: 0.10 %, UNK
  23. ZYRTEC [Concomitant]
     Dosage: 10 MG, UNK (1 AM, 1 PM)
  24. NASONEX [Concomitant]
     Dosage: UNK, 1X/DAY
  25. SYSTANE [Concomitant]
     Dosage: UNK (1 DROP EA EYE)
  26. TUMS [Concomitant]
     Dosage: 750 MG, AS NEEDED (2 TABS AS NEEDED)

REACTIONS (3)
  - Paraesthesia oral [Unknown]
  - Rash [Unknown]
  - Drug hypersensitivity [Unknown]
